FAERS Safety Report 6655044-6 (Version None)
Quarter: 2010Q1

REPORT INFORMATION
  Report Type: 
  Country: None (occurrence: None)
  Receive Date: 20100329
  Receipt Date: 20091218
  Transmission Date: 20100710
  Serious: Yes (Hospitalization, Other)
  Sender: FDA-Public Use
  Company Number: US-JNJFOC-20090503952

PATIENT
  Age: 55 Year
  Sex: Female

DRUGS (10)
  1. LEVAQUIN [Suspect]
     Indication: CHILLS
     Route: 042
  2. LEVAQUIN [Suspect]
     Indication: PYREXIA
     Route: 042
  3. AVELOX [Suspect]
     Indication: CHILLS
     Route: 065
  4. AVELOX [Suspect]
     Indication: PYREXIA
     Route: 065
  5. ZITHROMAX [Suspect]
     Indication: CHILLS
     Route: 042
  6. ZITHROMAX [Suspect]
     Indication: PYREXIA
     Route: 042
  7. ROCEPHIN [Suspect]
     Indication: CHILLS
     Route: 042
  8. ROCEPHIN [Suspect]
     Indication: PYREXIA
     Route: 042
  9. GENTAMICIN [Concomitant]
     Route: 065
  10. FORTINOL [Concomitant]
     Route: 065

REACTIONS (3)
  - ACUTE LUNG INJURY [None]
  - DRUG INEFFECTIVE [None]
  - PNEUMONIA [None]
